FAERS Safety Report 15165353 (Version 3)
Quarter: 2018Q3

REPORT INFORMATION
  Report Type: Spontaneous
  Country: PL (occurrence: PL)
  Receive Date: 20180719
  Receipt Date: 20180907
  Transmission Date: 20181010
  Serious: Yes (Other)
  Sender: FDA-Public Use
  Company Number: PL-ROCHE-2154890

PATIENT
  Age: 51 Year
  Sex: Male

DRUGS (13)
  1. PREDNISONE. [Suspect]
     Active Substance: PREDNISONE
     Dosage: THE DOSE WAS REDUCED BY 2.5 MG EVERY 5 DAYS UNTIL THE TARGET DOSE OF 5 MG/D AFTER 6 WEEK WAS REACHED
     Route: 065
  2. CLARITHROMYCIN. [Suspect]
     Active Substance: CLARITHROMYCIN
     Indication: PNEUMOCYSTIS JIROVECII PNEUMONIA
     Route: 065
  3. NYSTATIN. [Concomitant]
     Active Substance: NYSTATIN
     Indication: PROPHYLAXIS
  4. SULFAMETHOXAZOLE/TRIMETHOPRIM [Suspect]
     Active Substance: SULFAMETHOXAZOLE\TRIMETHOPRIM
     Indication: PNEUMOCYSTIS JIROVECII PNEUMONIA
     Route: 042
  5. DOXYCLINE [Suspect]
     Active Substance: DOXYCYCLINE
     Indication: PNEUMOCYSTIS JIROVECII PNEUMONIA
     Route: 065
  6. MYCOPHENOLATE MOFETIL. [Suspect]
     Active Substance: MYCOPHENOLATE MOFETIL
     Indication: IMMUNOSUPPRESSION
     Route: 065
  7. TACROLIMUS. [Suspect]
     Active Substance: TACROLIMUS
     Indication: IMMUNOSUPPRESSION
     Route: 065
  8. CIPROFLOXACIN. [Suspect]
     Active Substance: CIPROFLOXACIN
     Indication: PROPHYLAXIS URINARY TRACT INFECTION
     Dosage: IN THE EVENING
     Route: 065
  9. CEFTRIAXONE. [Suspect]
     Active Substance: CEFTRIAXONE
     Indication: PNEUMOCYSTIS JIROVECII PNEUMONIA
     Route: 065
  10. SULFAMETHOXAZOLE/TRIMETHOPRIM [Suspect]
     Active Substance: SULFAMETHOXAZOLE\TRIMETHOPRIM
     Route: 048
  11. VALGANCICLOVIR. [Concomitant]
     Active Substance: VALGANCICLOVIR
  12. PREDNISONE. [Suspect]
     Active Substance: PREDNISONE
     Indication: IMMUNOSUPPRESSION
     Dosage: THE DOSE WAS REDUCED BY 2.5 MG EVERY 5 DAYS UNTIL THE TARGET DOSE OF 5 MG/D AFTER 6 WEEK WAS REACHED
     Route: 065
  13. METHYLPREDNISOLONE. [Suspect]
     Active Substance: METHYLPREDNISOLONE
     Indication: IMMUNOSUPPRESSION
     Dosage: 3 X 40 MG/DAY
     Route: 042

REACTIONS (5)
  - Pruritus [Recovered/Resolved]
  - Oral candidiasis [Unknown]
  - Rash maculo-papular [Recovered/Resolved]
  - Aphthous ulcer [Unknown]
  - Pneumocystis jirovecii pneumonia [Unknown]
